FAERS Safety Report 8608263-3 (Version None)
Quarter: 2012Q3

REPORT INFORMATION
  Report Type: 
  Country: None (occurrence: None)
  Receive Date: 20120821
  Receipt Date: 20120809
  Transmission Date: 20120928
  Serious: Yes (Other)
  Sender: FDA-Public Use
  Company Number: NL-TEVA-352909ISR

PATIENT
  Sex: Female

DRUGS (1)
  1. CO-TRIMOXAZOL 960 PCH, TABLETTEN 800/160 MG [Suspect]
     Dosage: TABLETTEN 800/160 MG

REACTIONS (3)
  - MUSCULOSKELETAL PAIN [None]
  - VISUAL ACUITY REDUCED [None]
  - MONOPARESIS [None]
